FAERS Safety Report 4868629-4 (Version None)
Quarter: 2005Q4

REPORT INFORMATION
  Report Type: 
  Country: None (occurrence: None)
  Receive Date: 20051229
  Receipt Date: 20051221
  Transmission Date: 20060501
  Serious: Yes (Hospitalization)
  Sender: FDA-Public Use
  Company Number: JP-BRISTOL-MYERS SQUIBB COMPANY-13229307

PATIENT
  Age: 54 Year
  Sex: Male

DRUGS (2)
  1. MEVALOTIN [Suspect]
     Indication: HYPERLIPIDAEMIA
     Route: 048
     Dates: start: 20050201, end: 20051107
  2. INFLUENZA VACCINE [Suspect]
     Indication: INFLUENZA IMMUNISATION
     Route: 058
     Dates: start: 20051101, end: 20051101

REACTIONS (2)
  - MYOCARDIAL INFARCTION [None]
  - RHABDOMYOLYSIS [None]
